FAERS Safety Report 25915363 (Version 1)
Quarter: 2025Q4

REPORT INFORMATION
  Report Type: Spontaneous
  Country: US (occurrence: US)
  Receive Date: 20251013
  Receipt Date: 20251013
  Transmission Date: 20260117
  Serious: No
  Sender: ANI
  Company Number: US-ANIPHARMA-2025-US-033919

PATIENT
  Age: 77 Year
  Sex: Male
  Weight: 53.52 kg

DRUGS (12)
  1. CORTICOTROPIN [Suspect]
     Active Substance: CORTICOTROPIN
     Indication: Product used for unknown indication
     Route: 058
     Dates: start: 202409
  2. VITAMIN B [Concomitant]
     Active Substance: VITAMIN B
  3. VITAMIN D [Concomitant]
     Active Substance: VITAMIN D NOS
  4. POTASSIUM [Concomitant]
     Active Substance: POTASSIUM
  5. ACYCLOVIR [Concomitant]
     Active Substance: ACYCLOVIR
  6. DOXYCYCLINE [Concomitant]
     Active Substance: DOXYCYCLINE
  7. LATANOPROST [Concomitant]
     Active Substance: LATANOPROST
  8. TOBRAMYCIN [Concomitant]
     Active Substance: TOBRAMYCIN
  9. Trifluridine eye drops [Concomitant]
  10. Betaxolol eye drops [Concomitant]
  11. Rhopressa eye drops [Concomitant]
  12. FISH OIL [Concomitant]
     Active Substance: FISH OIL

REACTIONS (5)
  - Abnormal loss of weight [Unknown]
  - Agitation [Unknown]
  - Contusion [Unknown]
  - Decreased appetite [Unknown]
  - Contraindicated product administered [Unknown]

NARRATIVE: CASE EVENT DATE: 20240901
